FAERS Safety Report 12445813 (Version 1)
Quarter: 2016Q2

REPORT INFORMATION
  Report Type: Spontaneous
  Country: US (occurrence: US)
  Receive Date: 20160608
  Receipt Date: 20160608
  Transmission Date: 20160815
  Serious: No
  Sender: FDA-Public Use
  Company Number: US-JNJFOC-20160513291

PATIENT
  Sex: Male

DRUGS (3)
  1. MELOXICAM. [Concomitant]
     Active Substance: MELOXICAM
     Indication: PRODUCT USED FOR UNKNOWN INDICATION
     Route: 065
  2. TYLENOL 8 HR [Suspect]
     Active Substance: ACETAMINOPHEN
     Indication: ARTHRITIS
     Dosage: 1 CAPLET ONCE
     Route: 048
     Dates: start: 20160511
  3. TYLENOL 8 HR [Suspect]
     Active Substance: ACETAMINOPHEN
     Indication: OSTEOPOROSIS
     Dosage: 1 CAPLET ONCE
     Route: 048
     Dates: start: 20160511

REACTIONS (2)
  - Drug effect incomplete [Unknown]
  - Underdose [Unknown]

NARRATIVE: CASE EVENT DATE: 20160511
